FAERS Safety Report 7453347-9 (Version None)
Quarter: 2011Q2

REPORT INFORMATION
  Report Type: 
  Country: None (occurrence: None)
  Receive Date: 20110502
  Receipt Date: 20110418
  Transmission Date: 20111010
  Serious: Yes (Hospitalization)
  Sender: FDA-Public Use
  Company Number: PHHY2011TW09658

PATIENT
  Sex: Female

DRUGS (2)
  1. GLEEVEC [Suspect]
     Indication: GASTROINTESTINAL STROMAL TUMOUR
     Dosage: 400 MG, DAILY
     Route: 048
     Dates: start: 20101125
  2. GLEEVEC [Suspect]
     Dosage: 200-300 MG, DAILY
     Route: 048
     Dates: end: 20110301

REACTIONS (4)
  - DYSPNOEA [None]
  - LUNG DISORDER [None]
  - COUGH [None]
  - SKIN DISORDER [None]
